FAERS Safety Report 9051375 (Version 3)
Quarter: 2013Q1

REPORT INFORMATION
  Report Type: Spontaneous
  Country: IT (occurrence: IT)
  Receive Date: 20130206
  Receipt Date: 20130321
  Transmission Date: 20140127
  Serious: Yes (Disabling, Other)
  Sender: FDA-Public Use
  Company Number: IT-PFIZER INC-2013045833

PATIENT
  Age: 12 Year
  Sex: Male

DRUGS (1)
  1. GENOTROPIN MINIQUICK [Suspect]
     Indication: BLOOD GROWTH HORMONE DECREASED
     Dosage: 1.2 MG, 1X/DAY
     Route: 058
     Dates: start: 20120628

REACTIONS (1)
  - Hypoacusis [Recovering/Resolving]
